FAERS Safety Report 6821563-2 (Version None)
Quarter: 2010Q3

REPORT INFORMATION
  Report Type: 
  Country: None (occurrence: None)
  Receive Date: 20100707
  Receipt Date: 20090417
  Transmission Date: 20110219
  Serious: Yes (Other)
  Sender: FDA-Public Use
  Company Number: US-PFIZER INC-2009186298

PATIENT
  Age: 8 Year
  Sex: Male
  Weight: 25.85 kg

DRUGS (4)
  1. ZOLOFT [Suspect]
     Indication: ATTENTION DEFICIT/HYPERACTIVITY DISORDER
     Dosage: 150 MG, 1X/DAY
     Route: 048
     Dates: start: 20070726, end: 20090311
  2. ZOLOFT [Suspect]
     Indication: IRRITABILITY
  3. CLONIDINE [Concomitant]
     Dosage: 0.1 MG, 1X/DAY
  4. LISDEXAMFETAMINE DIMESYLATE [Concomitant]
     Dosage: 70 MG, UNK

REACTIONS (1)
  - PRIAPISM [None]
